FAERS Safety Report 24258387 (Version 1)
Quarter: 2024Q3

REPORT INFORMATION
  Report Type: Report from Study
  Country: BR (occurrence: BR)
  Receive Date: 20240828
  Receipt Date: 20240828
  Transmission Date: 20241017
  Serious: Yes (Hospitalization)
  Sender: JOHNSON AND JOHNSON
  Company Number: BR-JNJFOC-20240823143

PATIENT
  Age: 18 Year
  Sex: Male
  Weight: 33 kg

DRUGS (3)
  1. INFLIXIMAB [Suspect]
     Active Substance: INFLIXIMAB
     Indication: Crohn^s disease
     Dosage: SECOND DOSE: 16-JUL-2024
     Route: 041
     Dates: start: 20240702
  2. INFLIXIMAB [Suspect]
     Active Substance: INFLIXIMAB
     Dosage: RECEIVED FIRST MAINTENANCE DOSE OF INFLIXIMAB WHILE STILL HOSPITALIZED
     Route: 041
     Dates: start: 20240813
  3. AZATHIOPRINE [Concomitant]
     Active Substance: AZATHIOPRINE
     Dosage: ONE TABLET EVERY DAY

REACTIONS (6)
  - Crohn^s disease [Recovering/Resolving]
  - Gait disturbance [Not Recovered/Not Resolved]
  - Ill-defined disorder [Not Recovered/Not Resolved]
  - Hypersensitivity [Recovered/Resolved]
  - Skin discolouration [Recovered/Resolved]
  - Pain [Unknown]

NARRATIVE: CASE EVENT DATE: 20240101
